FAERS Safety Report 14665035 (Version 1)
Quarter: 2018Q1

REPORT INFORMATION
  Report Type: Spontaneous
  Country: US (occurrence: US)
  Receive Date: 20180319
  Receipt Date: 20180319
  Transmission Date: 20180509
  Serious: Yes (Other)
  Sender: FDA-Public Use
  Company Number: None

PATIENT
  Age: 41 Year
  Sex: Female
  Weight: 87.75 kg

DRUGS (1)
  1. BUPRIOPION 300MG XL [Suspect]
     Active Substance: BUPROPION
     Indication: DEPRESSION
     Route: 048

REACTIONS (1)
  - Depression [None]
